FAERS Safety Report 19211563 (Version 1)
Quarter: 2021Q2

REPORT INFORMATION
  Report Type: Spontaneous
  Country: PL (occurrence: PL)
  Receive Date: 20210504
  Receipt Date: 20210504
  Transmission Date: 20210717
  Serious: Yes (Other)
  Sender: FDA-Public Use
  Company Number: PL-PFIZER INC-2021434749

PATIENT
  Age: 49 Year
  Weight: 86 kg

DRUGS (1)
  1. SUTENT [Suspect]
     Active Substance: SUNITINIB MALATE

REACTIONS (21)
  - Glaucoma [Unknown]
  - Neutropenia [Unknown]
  - Hair colour changes [Unknown]
  - Leukopenia [Unknown]
  - Otitis media chronic [Unknown]
  - Weight decreased [Unknown]
  - Chronic kidney disease [Unknown]
  - Anaemia [Unknown]
  - Hyperglycaemia [Unknown]
  - Intervertebral disc compression [Unknown]
  - Oedema peripheral [Unknown]
  - Decreased appetite [Unknown]
  - Thrombocytosis [Unknown]
  - Hypothyroidism [Unknown]
  - Inflammation [Unknown]
  - Asthenia [Unknown]
  - Diarrhoea [Unknown]
  - Weight increased [Unknown]
  - Dry skin [Unknown]
  - Transaminases increased [Unknown]
  - Blood pressure increased [Unknown]
